FAERS Safety Report 8244507-8 (Version None)
Quarter: 2012Q1

REPORT INFORMATION
  Report Type: 
  Country: None (occurrence: None)
  Receive Date: 20120329
  Receipt Date: 20120320
  Transmission Date: 20120608
  Serious: Yes (Other)
  Sender: FDA-Public Use
  Company Number: US-ABBOTT-12P-163-0917223-00

PATIENT
  Sex: Female
  Weight: 70.37 kg

DRUGS (9)
  1. CELEBREX [Suspect]
     Indication: BACK PAIN
     Dosage: 200 MG DAILY
     Route: 048
     Dates: start: 20000301, end: 20021201
  2. IBUPROFEN [Concomitant]
     Indication: NECK PAIN
  3. IBUPROFEN [Concomitant]
     Indication: BACK PAIN
     Route: 048
     Dates: start: 20000301, end: 20000601
  4. BUPROPION HCL [Concomitant]
     Indication: NEURALGIA
     Route: 048
     Dates: start: 20000301, end: 20000601
  5. OXYCONTIN [Concomitant]
     Indication: NECK PAIN
  6. VICODIN [Suspect]
     Indication: NECK PAIN
  7. CELEBREX [Suspect]
     Indication: NECK PAIN
  8. VICODIN [Suspect]
     Indication: BACK PAIN
     Route: 048
     Dates: start: 20000301, end: 20000601
  9. OXYCONTIN [Concomitant]
     Indication: BACK PAIN
     Route: 048
     Dates: start: 20000601

REACTIONS (3)
  - GASTRIC HAEMORRHAGE [None]
  - INCORRECT DOSE ADMINISTERED [None]
  - ABDOMINAL PAIN UPPER [None]
